FAERS Safety Report 20479767 (Version 1)
Quarter: 2022Q1

REPORT INFORMATION
  Report Type: Spontaneous
  Country: TW (occurrence: TW)
  Receive Date: 20220216
  Receipt Date: 20220216
  Transmission Date: 20220423
  Serious: Yes (Death, Hospitalization, Other)
  Sender: FDA-Public Use
  Company Number: TW-PFIZER INC-202200214750

PATIENT
  Age: 80 Year
  Sex: Female

DRUGS (1)
  1. DACOMITINIB [Suspect]
     Active Substance: DACOMITINIB
     Indication: Lung adenocarcinoma stage IV
     Dosage: 15 MG,1#, QD
     Dates: start: 20210810

REACTIONS (5)
  - Pneumonia [Fatal]
  - Respiratory failure [Fatal]
  - Septic shock [Fatal]
  - Corynebacterium bacteraemia [Fatal]
  - Duodenal ulcer [Fatal]
